FAERS Safety Report 7032160-0 (Version None)
Quarter: 2010Q4

REPORT INFORMATION
  Report Type: 
  Country: None (occurrence: None)
  Receive Date: 20101007
  Receipt Date: 20100927
  Transmission Date: 20110411
  Serious: Yes (Other)
  Sender: FDA-Public Use
  Company Number: US-BAXTER-2010BH024507

PATIENT
  Age: 15 Year
  Sex: Male
  Weight: 70 kg

DRUGS (19)
  1. GAMMAGARD LIQUID [Suspect]
     Indication: IMMUNODEFICIENCY COMMON VARIABLE
     Route: 042
     Dates: start: 20100810
  2. GAMMAGARD LIQUID [Suspect]
     Indication: PRIMARY IMMUNODEFICIENCY SYNDROME
     Route: 042
     Dates: start: 20100810
  3. GAMMAGARD LIQUID [Suspect]
     Route: 042
     Dates: start: 20100810
  4. GAMMAGARD LIQUID [Suspect]
     Route: 042
     Dates: start: 20100810
  5. GAMMAGARD LIQUID [Suspect]
     Route: 065
     Dates: start: 20071201, end: 20081001
  6. GAMMAGARD LIQUID [Suspect]
     Route: 065
     Dates: start: 20071201, end: 20081001
  7. GAMMAGARD LIQUID [Suspect]
     Route: 042
     Dates: start: 20100926, end: 20100926
  8. GAMMAGARD LIQUID [Suspect]
     Route: 042
     Dates: start: 20100926, end: 20100926
  9. GAMMAGARD LIQUID [Suspect]
     Route: 042
     Dates: start: 20100926, end: 20100926
  10. GAMMAGARD LIQUID [Suspect]
     Route: 042
     Dates: start: 20100926, end: 20100926
  11. ADVIL LIQUI-GELS [Concomitant]
     Indication: PREMEDICATION
     Route: 048
     Dates: start: 20100926, end: 20100926
  12. DIPHENHYDRAMINE [Concomitant]
     Indication: PREMEDICATION
     Route: 048
     Dates: start: 20100926, end: 20100926
  13. ADVAIR DISKUS 100/50 [Concomitant]
     Indication: ASTHMA
     Route: 055
  14. ALBUTEROL [Concomitant]
     Indication: ASTHMA
  15. SINGULAIR [Concomitant]
     Indication: HYPERSENSITIVITY
     Route: 048
  16. ZYRTEC [Concomitant]
     Indication: HYPERSENSITIVITY
     Route: 048
  17. MOTRIN [Concomitant]
     Route: 048
  18. EMLA [Concomitant]
     Route: 061
  19. BACTROBAN [Concomitant]
     Route: 061

REACTIONS (1)
  - HYPERSENSITIVITY [None]
